FAERS Safety Report 13364183 (Version 1)
Quarter: 2017Q1

REPORT INFORMATION
  Report Type: Spontaneous
  Country: US (occurrence: US)
  Receive Date: 20170322
  Receipt Date: 20170322
  Transmission Date: 20170429
  Serious: Yes (Hospitalization)
  Sender: FDA-Public Use
  Company Number: None

PATIENT
  Age: 59 Year
  Sex: Male
  Weight: 110.5 kg

DRUGS (3)
  1. LEUCOVORIN CALCIUM. [Suspect]
     Active Substance: LEUCOVORIN CALCIUM
     Dates: end: 20170221
  2. ELOXATIN [Suspect]
     Active Substance: OXALIPLATIN
     Dates: end: 20170221
  3. 5-FLUOROURACIL (5-FU) [Suspect]
     Active Substance: FLUOROURACIL
     Dates: end: 20170221

REACTIONS (7)
  - Anastomotic leak [None]
  - Dehydration [None]
  - Urinary tract infection [None]
  - Hyponatraemia [None]
  - Fatigue [None]
  - Proteus infection [None]
  - Post procedural complication [None]

NARRATIVE: CASE EVENT DATE: 20170313
